FAERS Safety Report 21274592 (Version 4)
Quarter: 2022Q3

REPORT INFORMATION
  Report Type: Report from Study
  Country: AT (occurrence: AT)
  Receive Date: 20220831
  Receipt Date: 20220922
  Transmission Date: 20221027
  Serious: Yes (Hospitalization, Other)
  Sender: FDA-Public Use
  Company Number: AT-PFM-2022-06174

PATIENT
  Age: 54 Year
  Sex: Female
  Weight: 50 kg

DRUGS (15)
  1. ENCORAFENIB [Suspect]
     Active Substance: ENCORAFENIB
     Indication: Malignant melanoma
     Dosage: 450 MG, QD (1/DAY)
     Route: 048
     Dates: start: 20220426
  2. BINIMETINIB [Suspect]
     Active Substance: BINIMETINIB
     Indication: Malignant melanoma
     Dosage: 45 MG, BID (2/DAY)
     Route: 048
     Dates: start: 20220426
  3. PANTOPRAZOLE SODIUM [Concomitant]
     Active Substance: PANTOPRAZOLE SODIUM
     Indication: Prophylaxis
     Dosage: UNK
     Route: 065
  4. VITAMINS WITH MINERALS [Concomitant]
     Active Substance: MINERALS\VITAMINS
     Indication: Prophylaxis
     Dosage: UNK
     Route: 065
  5. OLEOVIT [BENZALKONIUM CHLORIDE;DEXPANTHENOL;RETINOL PALMITATE] [Concomitant]
     Indication: Prophylaxis
     Dosage: UNK
     Route: 065
  6. LEVETIRACETAM [Concomitant]
     Active Substance: LEVETIRACETAM
     Indication: Prophylaxis
     Dosage: UNK
     Route: 065
  7. CANRENOATE POTASSIUM [Concomitant]
     Active Substance: CANRENOATE POTASSIUM
     Indication: Prophylaxis
     Dosage: UNK
     Route: 065
     Dates: end: 20220704
  8. DEXAMETHASONE [Concomitant]
     Active Substance: DEXAMETHASONE
     Indication: Prophylaxis
     Dosage: UNK
     Route: 065
  9. ACETAMINOPHEN\CAFFEINE\PROPYPHENAZONE [Concomitant]
     Active Substance: ACETAMINOPHEN\CAFFEINE\PROPYPHENAZONE
     Dosage: UNK
     Route: 065
     Dates: end: 20220704
  10. DEXIBUPROFEN [Concomitant]
     Active Substance: DEXIBUPROFEN
     Indication: Prophylaxis
     Dosage: UNK
     Route: 065
     Dates: end: 20220704
  11. MOVICOL [Concomitant]
     Active Substance: POLYETHYLENE GLYCOL 3350\POTASSIUM CHLORIDE\SODIUM BICARBONATE\SODIUM CHLORIDE
     Indication: Prophylaxis
     Dosage: UNK
     Route: 065
     Dates: start: 20220805, end: 20220805
  12. OPTIFIBRE [Concomitant]
     Indication: Prophylaxis
     Dosage: UNK
     Route: 065
     Dates: start: 20220808, end: 20220811
  13. LOVENOX [Concomitant]
     Active Substance: ENOXAPARIN SODIUM
     Indication: Prophylaxis
     Dosage: UNK
     Route: 065
     Dates: start: 20220804, end: 20220810
  14. PREGABALIN [Concomitant]
     Active Substance: PREGABALIN
     Indication: Prophylaxis
     Dosage: UNK
     Route: 065
     Dates: start: 20220811
  15. CALSHAKE [Concomitant]
     Indication: Prophylaxis
     Dosage: UNK
     Route: 065

REACTIONS (6)
  - Urinary tract infection [Not Recovered/Not Resolved]
  - General physical health deterioration [Not Recovered/Not Resolved]
  - C-reactive protein increased [Not Recovered/Not Resolved]
  - Confusional state [Not Recovered/Not Resolved]
  - Diarrhoea [Recovering/Resolving]
  - Neoplasm progression [Recovered/Resolved]

NARRATIVE: CASE EVENT DATE: 20220721
